FAERS Safety Report 16933333 (Version 1)
Quarter: 2019Q4

REPORT INFORMATION
  Report Type: Spontaneous
  Country: US (occurrence: US)
  Receive Date: 20191018
  Receipt Date: 20191018
  Transmission Date: 20200122
  Serious: No
  Sender: FDA-Public Use
  Company Number: US-GLAXOSMITHKLINE-US2019186604

PATIENT
  Age: 37 Year
  Sex: Female

DRUGS (1)
  1. ABREVA [Suspect]
     Active Substance: DOCOSANOL
     Indication: ORAL HERPES
     Dosage: 1 APPLICATION FIVE TIMES DAILY
     Route: 062
     Dates: start: 20191011, end: 20191013

REACTIONS (3)
  - Condition aggravated [Unknown]
  - Paraesthesia oral [Unknown]
  - Oral discomfort [Unknown]

NARRATIVE: CASE EVENT DATE: 20191011
